FAERS Safety Report 13256891 (Version 6)
Quarter: 2018Q1

REPORT INFORMATION
  Report Type: Spontaneous
  Country: US (occurrence: US)
  Receive Date: 20170221
  Receipt Date: 20180216
  Transmission Date: 20180508
  Serious: Yes (Other)
  Sender: FDA-Public Use
  Company Number: US-TEVA-741028ACC

PATIENT
  Age: 41 Year
  Sex: Female

DRUGS (17)
  1. PROVIGIL [Concomitant]
     Active Substance: MODAFINIL
  2. VITAMIN D3 [Concomitant]
     Active Substance: CHOLECALCIFEROL
  3. HIPREX [Concomitant]
     Active Substance: METHENAMINE HIPPURATE
  4. CLONAZEPAM. [Concomitant]
     Active Substance: CLONAZEPAM
     Dosage: ODT
  5. TYLENOL [Concomitant]
     Active Substance: ACETAMINOPHEN
  6. CYCLOBENZAPRINE. [Concomitant]
     Active Substance: CYCLOBENZAPRINE
  7. BACLOFEN. [Concomitant]
     Active Substance: BACLOFEN
  8. OMEGA 3 [Concomitant]
     Active Substance: OMEGA-3 FATTY ACIDS
  9. VICODIN [Concomitant]
     Active Substance: ACETAMINOPHEN\HYDROCODONE BITARTRATE
  10. LECITHIN [Concomitant]
     Active Substance: LECITHIN
  11. IRON [Concomitant]
     Active Substance: IRON
  12. PRIMROSE OIL [Concomitant]
  13. COPAXONE [Suspect]
     Active Substance: GLATIRAMER ACETATE
     Indication: MULTIPLE SCLEROSIS
     Dosage: MON, WED AND FRI, PFS
     Route: 058
     Dates: start: 20151009
  14. CELEXA [Concomitant]
     Active Substance: CITALOPRAM HYDROBROMIDE
  15. COQ10 [Concomitant]
     Active Substance: UBIDECARENONE
  16. PRILOSEC [Concomitant]
     Active Substance: OMEPRAZOLE MAGNESIUM
  17. CRANBERRY. [Concomitant]
     Active Substance: CRANBERRY

REACTIONS (15)
  - Musculoskeletal stiffness [Not Recovered/Not Resolved]
  - Multiple sclerosis relapse [Unknown]
  - Incorrect dose administered by device [Unknown]
  - Asthenia [Not Recovered/Not Resolved]
  - Nausea [Unknown]
  - Headache [Unknown]
  - Bladder disorder [Not Recovered/Not Resolved]
  - Dysarthria [Not Recovered/Not Resolved]
  - Injection site erythema [Unknown]
  - Memory impairment [Not Recovered/Not Resolved]
  - Nasopharyngitis [Not Recovered/Not Resolved]
  - Hypoaesthesia [Not Recovered/Not Resolved]
  - Pain in extremity [Not Recovered/Not Resolved]
  - Movement disorder [Not Recovered/Not Resolved]
  - Chills [Not Recovered/Not Resolved]

NARRATIVE: CASE EVENT DATE: 20171007
